FAERS Safety Report 4624568-5 (Version None)
Quarter: 2005Q1

REPORT INFORMATION
  Report Type: 
  Country: None (occurrence: None)
  Receive Date: 20050107
  Receipt Date: 20041104
  Transmission Date: 20050727
  Serious: No
  Sender: FDA-Public Use
  Company Number: 235583K04USA

PATIENT
  Age: 47 Year
  Sex: Female

DRUGS (2)
  1. REBIF [Suspect]
     Indication: MULTIPLE SCLEROSIS
     Dosage: 1 IN 1 WEEKS,
     Dates: start: 20021003
  2. LEXAPRO [Concomitant]

REACTIONS (5)
  - DEPRESSION [None]
  - EYE PAIN [None]
  - INSOMNIA [None]
  - IRITIS [None]
  - VISUAL DISTURBANCE [None]
